FAERS Safety Report 6253724-8 (Version None)
Quarter: 2009Q2

REPORT INFORMATION
  Report Type: 
  Country: None (occurrence: None)
  Receive Date: 20090630
  Receipt Date: 20090616
  Transmission Date: 20091009
  Serious: Yes (Death)
  Sender: FDA-Public Use
  Company Number: PHO-2009-007

PATIENT
  Age: 73 Year
  Sex: Female

DRUGS (1)
  1. PHOTOFRIN [Suspect]
     Indication: SQUAMOUS CELL CARCINOMA
     Dosage: 96.54MG, IV, ONE DOSE
     Dates: start: 20090413

REACTIONS (7)
  - CARDIAC ARREST [None]
  - COMA [None]
  - DEHYDRATION [None]
  - GENERAL PHYSICAL HEALTH DETERIORATION [None]
  - MALNUTRITION [None]
  - PAIN [None]
  - RESPIRATORY ARREST [None]
